FAERS Safety Report 11825741 (Version 8)
Quarter: 2018Q1

REPORT INFORMATION
  Report Type: Spontaneous
  Country: US (occurrence: US)
  Receive Date: 20151211
  Receipt Date: 20180208
  Transmission Date: 20180508
  Serious: No
  Sender: FDA-Public Use
  Company Number: US-JNJFOC-20140719615

PATIENT
  Sex: Male

DRUGS (5)
  1. ACYCLOVIR. [Concomitant]
     Active Substance: ACYCLOVIR
     Route: 048
  2. IVIGLOB EX [Concomitant]
     Active Substance: HUMAN IMMUNOGLOBULIN G
     Dosage: UNK, MONTHLY
     Route: 042
  3. IMBRUVICA [Suspect]
     Active Substance: IBRUTINIB
     Indication: CHRONIC LYMPHOCYTIC LEUKAEMIA
     Route: 048
     Dates: start: 20140407, end: 20160731
  4. IMBRUVICA [Suspect]
     Active Substance: IBRUTINIB
     Indication: CHRONIC LYMPHOCYTIC LEUKAEMIA
     Route: 048
     Dates: start: 20140410
  5. IMBRUVICA [Suspect]
     Active Substance: IBRUTINIB
     Indication: CHRONIC LYMPHOCYTIC LEUKAEMIA
     Route: 048
     Dates: start: 20160928

REACTIONS (13)
  - Drug dose omission [Unknown]
  - Immunodeficiency [Not Recovered/Not Resolved]
  - Feeling hot [Unknown]
  - White blood cell count increased [Not Recovered/Not Resolved]
  - Bone pain [Not Recovered/Not Resolved]
  - Weight decreased [Recovering/Resolving]
  - Myalgia [Not Recovered/Not Resolved]
  - Ageusia [Not Recovered/Not Resolved]
  - Muscle spasms [Recovered/Resolved]
  - Gait disturbance [Unknown]
  - Abdominal pain upper [Unknown]
  - Decreased appetite [Recovering/Resolving]
  - Pain in extremity [Not Recovered/Not Resolved]

NARRATIVE: CASE EVENT DATE: 2014
